FAERS Safety Report 8646950 (Version 2)
Quarter: 2012Q4

REPORT INFORMATION
  Report Type: Spontaneous
  Country: AU (occurrence: None)
  Receive Date: 20120619
  Receipt Date: 20120924
  Transmission Date: 20130627
  Serious: Yes (Other)
  Sender: FDA-Public Use
  Company Number: ENTC2012-0087

PATIENT
  Sex: Female

DRUGS (6)
  1. STALEVO [Suspect]
     Indication: PARKINSON^S DISEASE
     Dosage: 6 TIMES
     Route: 048
     Dates: start: 2005
  2. PRAMIPEXOLE DIHYDROCHLORIDE [Concomitant]
  3. MOVICOL [Concomitant]
  4. MOTILIUM [Concomitant]
  5. MIRTAZAPINE [Concomitant]
  6. SINEMET [Concomitant]

REACTIONS (2)
  - Medication residue [None]
  - Parkinson^s disease [None]
